FAERS Safety Report 5625686-5 (Version None)
Quarter: 2008Q1

REPORT INFORMATION
  Report Type: 
  Country: None (occurrence: None)
  Receive Date: 20080207
  Receipt Date: 20080207
  Transmission Date: 20080703
  Serious: Yes (Death)
  Sender: FDA-Public Use
  Company Number: None

PATIENT
  Age: 79 Year
  Sex: Male
  Weight: 96.1 kg

DRUGS (16)
  1. AMIODARONE HCL [Suspect]
     Indication: ATRIAL FIBRILLATION
     Dosage: 200MG DAILY IV
     Route: 042
     Dates: start: 20080109, end: 20080115
  2. LEVAQUIN [Suspect]
     Indication: PNEUMONIA
     Dosage: 250 MG Q 48 HR IV
     Route: 042
     Dates: start: 20080111, end: 20080113
  3. AZITHROMYCIN [Concomitant]
  4. LEVOFLOXACIN [Concomitant]
  5. ALBUMIN (HUMAN) [Concomitant]
  6. ALLOPURINOL [Concomitant]
  7. EPOETIN ALFA [Concomitant]
  8. MANNITOL [Concomitant]
  9. MIDODRINE [Concomitant]
  10. SPIRONOLACTONE [Concomitant]
  11. TAMSULOSIN HCL [Concomitant]
  12. WARFARIN SODIUM [Concomitant]
  13. EPINEPHRINE [Concomitant]
  14. ATROPINE [Concomitant]
  15. CALCIUM [Concomitant]
  16. SODIUM BICARBONATE [Concomitant]

REACTIONS (3)
  - CARDIO-RESPIRATORY ARREST [None]
  - ELECTROCARDIOGRAM QT PROLONGED [None]
  - VENTRICULAR FIBRILLATION [None]
